FAERS Safety Report 25875678 (Version 1)
Quarter: 2025Q4

REPORT INFORMATION
  Report Type: Other
  Country: IN (occurrence: IN)
  Receive Date: 20251003
  Receipt Date: 20251003
  Transmission Date: 20260118
  Serious: Yes (Hospitalization)
  Sender: NOVITIUM PHARMA
  Company Number: IN-NOVITIUM PHARMA-000012

PATIENT
  Age: 43 Year
  Sex: Male
  Weight: 50 kg

DRUGS (7)
  1. METRONIDAZOLE [Suspect]
     Active Substance: METRONIDAZOLE
     Indication: Abdominal pain
  2. CIPROFLOXACIN [Concomitant]
     Active Substance: CIPROFLOXACIN
     Indication: Diarrhoea
  3. NORFLOXACIN [Concomitant]
     Active Substance: NORFLOXACIN
     Indication: Abdominal pain
  4. DICYCLOMINE HYDROCHLORIDE [Concomitant]
     Active Substance: DICYCLOMINE HYDROCHLORIDE
     Indication: Product used for unknown indication
  5. ACETAMINOPHEN [Concomitant]
     Active Substance: ACETAMINOPHEN
     Indication: Product used for unknown indication
  6. NORFLOXACIN [Concomitant]
     Active Substance: NORFLOXACIN
     Indication: Diarrhoea
  7. METRONIDAZOLE [Suspect]
     Active Substance: METRONIDAZOLE
     Indication: Diarrhoea

REACTIONS (1)
  - Fixed eruption [Recovered/Resolved with Sequelae]
